FAERS Safety Report 10228457 (Version 3)
Quarter: 2014Q2

REPORT INFORMATION
  Report Type: Report from Study
  Country: FR (occurrence: FR)
  Receive Date: 20140610
  Receipt Date: 20140620
  Transmission Date: 20141212
  Serious: Yes (Other)
  Sender: FDA-Public Use
  Company Number: PHHY2013FR038643

PATIENT
  Age: 36 Year
  Sex: Female

DRUGS (5)
  1. EXTAVIA [Suspect]
     Indication: MULTIPLE SCLEROSIS
     Dosage: 1 DF, QOD (EVERY 2 DAYS)
     Route: 058
     Dates: start: 20110501
  2. LYRICA [Concomitant]
     Indication: PARAESTHESIA
     Dosage: 200 MG, DAILY
     Route: 048
     Dates: start: 20110201
  3. LYRICA [Concomitant]
     Indication: PAIN IN EXTREMITY
     Dosage: 300 MG, UNK
  4. DAFALGAN [Concomitant]
     Indication: INFLUENZA LIKE ILLNESS
     Dosage: 1 G, DAILY
     Route: 048
     Dates: start: 20110501
  5. UVEDOSE [Concomitant]
     Indication: VITAMIN D DEFICIENCY
     Dosage: 1 DF, MONTHLY
     Route: 048
     Dates: start: 20110401

REACTIONS (6)
  - Angina pectoris [Recovered/Resolved]
  - Leukopenia [Recovering/Resolving]
  - White blood cell count decreased [Not Recovered/Not Resolved]
  - Neutropenia [Recovering/Resolving]
  - Bronchitis [Not Recovered/Not Resolved]
  - Gastroenteritis [Recovered/Resolved]
